FAERS Safety Report 10138628 (Version 1)
Quarter: 2014Q2

REPORT INFORMATION
  Report Type: Spontaneous
  Country: FR (occurrence: FR)
  Receive Date: 20140429
  Receipt Date: 20140429
  Transmission Date: 20141212
  Serious: Yes (Other)
  Sender: FDA-Public Use
  Company Number: FR-JNJFOC-20140417354

PATIENT
  Age: 61 Year
  Sex: Female

DRUGS (1)
  1. STELARA [Suspect]
     Indication: PSORIASIS
     Route: 058
     Dates: start: 20130313

REACTIONS (3)
  - Pericardial effusion [Not Recovered/Not Resolved]
  - Emphysema [Unknown]
  - Antinuclear antibody positive [Unknown]
